FAERS Safety Report 16964796 (Version 1)
Quarter: 2019Q4

REPORT INFORMATION
  Report Type: Spontaneous
  Country: CA (occurrence: CA)
  Receive Date: 20191028
  Receipt Date: 20191028
  Transmission Date: 20200122
  Serious: Yes (Death, Hospitalization, Other)
  Sender: FDA-Public Use
  Company Number: CA-AUROBINDO-AUR-APL-2019-068581

PATIENT
  Age: 76 Year
  Sex: Female

DRUGS (8)
  1. VALSARTAN. [Suspect]
     Active Substance: VALSARTAN
     Indication: HYPERTENSION
     Dosage: UNK
     Route: 048
  2. LUTETIUM (LU 177) [Concomitant]
     Active Substance: LUTETIUM LU-177
     Dosage: UNK
     Route: 065
  3. HYDROCHLOROTHIAZIDE. [Concomitant]
     Active Substance: HYDROCHLOROTHIAZIDE
     Indication: PRODUCT USED FOR UNKNOWN INDICATION
     Dosage: 25 MILLIGRAM
     Route: 065
  4. SANDOSTATIN [Suspect]
     Active Substance: OCTREOTIDE ACETATE
     Indication: NEUROENDOCRINE TUMOUR
     Dosage: 50 MICROGRAM, IN TOTAL
     Route: 058
  5. HYDROCHLOROTHIAZIDE. [Concomitant]
     Active Substance: HYDROCHLOROTHIAZIDE
     Dosage: 0.5 DOSAGE FORM
     Route: 065
  6. CALCIUM [Concomitant]
     Active Substance: CALCIUM
     Indication: PRODUCT USED FOR UNKNOWN INDICATION
     Dosage: UNK
     Route: 065
  7. SANDOSTATIN LAR DEPOT [Suspect]
     Active Substance: OCTREOTIDE ACETATE
     Indication: NEUROENDOCRINE TUMOUR
     Dosage: 30 MILLIGRAM, EVERY MONTH
     Route: 030
  8. LUTETIUM (LU 177) [Concomitant]
     Active Substance: LUTETIUM LU-177
     Indication: PRODUCT USED FOR UNKNOWN INDICATION
     Dosage: UNK
     Route: 065

REACTIONS (57)
  - Balance disorder [Fatal]
  - Death [Fatal]
  - Erythema [Fatal]
  - Musculoskeletal pain [Fatal]
  - Nausea [Fatal]
  - Pain [Fatal]
  - Sluggishness [Fatal]
  - Tongue erythema [Fatal]
  - Weight decreased [Fatal]
  - Crying [Fatal]
  - Dry mouth [Fatal]
  - Emotional distress [Fatal]
  - Fatigue [Fatal]
  - Frustration tolerance decreased [Fatal]
  - Memory impairment [Fatal]
  - Movement disorder [Fatal]
  - Rash erythematous [Fatal]
  - Rash pruritic [Fatal]
  - Blood pressure systolic increased [Fatal]
  - Bowel movement irregularity [Fatal]
  - Chest discomfort [Fatal]
  - Gout [Fatal]
  - Lip dry [Fatal]
  - Productive cough [Fatal]
  - Umbilical hernia [Fatal]
  - Abdominal discomfort [Fatal]
  - Abdominal pain [Fatal]
  - Abdominal pain upper [Fatal]
  - Anxiety [Fatal]
  - Blood pressure decreased [Fatal]
  - Cough [Fatal]
  - Crystal arthropathy [Fatal]
  - Decreased appetite [Fatal]
  - Feeling abnormal [Fatal]
  - Mental impairment [Fatal]
  - Apathy [Fatal]
  - Constipation [Fatal]
  - Fluid retention [Fatal]
  - Stress [Fatal]
  - Arthralgia [Fatal]
  - Dyspnoea [Fatal]
  - Glossodynia [Fatal]
  - Incontinence [Fatal]
  - Oedema [Fatal]
  - Paraesthesia [Fatal]
  - Abdominal distension [Fatal]
  - Eating disorder [Fatal]
  - Heart rate increased [Fatal]
  - Laryngitis [Fatal]
  - Muscle strain [Fatal]
  - Musculoskeletal chest pain [Fatal]
  - Oropharyngeal pain [Fatal]
  - Skin induration [Fatal]
  - Vertigo [Fatal]
  - Asthenia [Fatal]
  - Chest pain [Fatal]
  - Urinary tract infection [Fatal]
